FAERS Safety Report 5856884-3 (Version None)
Quarter: 2008Q3

REPORT INFORMATION
  Report Type: 
  Country: None (occurrence: None)
  Receive Date: 20080822
  Receipt Date: 20080822
  Transmission Date: 20090109
  Serious: Yes (Other)
  Sender: FDA-Public Use
  Company Number: None

PATIENT
  Age: 51 Year
  Sex: Female
  Weight: 126.5536 kg

DRUGS (3)
  1. ZOLPIDEM [Suspect]
     Indication: BIPOLAR DISORDER
     Dosage: 1 TABLET ONCE A DAY PO
     Route: 048
     Dates: start: 20080818, end: 20080819
  2. ZOLPIDEM [Suspect]
     Indication: FIBROMYALGIA
     Dosage: 1 TABLET ONCE A DAY PO
     Route: 048
     Dates: start: 20080818, end: 20080819
  3. ZOLPIDEM [Suspect]
     Indication: SLEEP DISORDER
     Dosage: 1 TABLET ONCE A DAY PO
     Route: 048
     Dates: start: 20080818, end: 20080819

REACTIONS (3)
  - DRUG HYPERSENSITIVITY [None]
  - PHARMACEUTICAL PRODUCT COMPLAINT [None]
  - RASH [None]
